FAERS Safety Report 24212041 (Version 1)
Quarter: 2024Q3

REPORT INFORMATION
  Report Type: Spontaneous
  Country: US (occurrence: US)
  Receive Date: 20240815
  Receipt Date: 20240815
  Transmission Date: 20241017
  Serious: No
  Sender: IRONSHORE PHARMA
  Company Number: US-IRONSHORE PHARMACEUTICALS INC. (IPA)-JOR-2023-000111

PATIENT
  Sex: Male

DRUGS (5)
  1. JORNAY PM EXTENDED-RELEASE [Suspect]
     Active Substance: METHYLPHENIDATE HYDROCHLORIDE
     Indication: Attention deficit hyperactivity disorder
     Dosage: 80 MG, QD
     Route: 048
     Dates: start: 202307, end: 20230808
  2. JORNAY PM EXTENDED-RELEASE [Suspect]
     Active Substance: METHYLPHENIDATE HYDROCHLORIDE
     Dosage: 80 MG, QD
     Route: 048
     Dates: start: 20220920, end: 20230711
  3. JORNAY PM EXTENDED-RELEASE [Suspect]
     Active Substance: METHYLPHENIDATE HYDROCHLORIDE
     Dosage: 20 MG, QD
     Route: 048
     Dates: start: 20220215, end: 20220823
  4. GUANFACINE [Concomitant]
     Active Substance: GUANFACINE
     Indication: Product used for unknown indication
     Dosage: UNKNOWN
     Route: 065
  5. CETIRIZINE [Concomitant]
     Active Substance: CETIRIZINE HYDROCHLORIDE
     Indication: Product used for unknown indication
     Dosage: UNKNOWN
     Route: 065

REACTIONS (4)
  - Product administration interrupted [Recovered/Resolved]
  - Affect lability [Unknown]
  - Psychomotor hyperactivity [Unknown]
  - Tremor [Unknown]
